FAERS Safety Report 7092236-9 (Version None)
Quarter: 2010Q4

REPORT INFORMATION
  Report Type: 
  Country: None (occurrence: None)
  Receive Date: 20101109
  Receipt Date: 20101102
  Transmission Date: 20110411
  Serious: Yes (Other)
  Sender: FDA-Public Use
  Company Number: AU-ABBOTT-10P-008-0682952-00

PATIENT
  Age: 57 Year
  Sex: Female

DRUGS (3)
  1. VALPROATE SODIUM [Suspect]
     Indication: BIPOLAR DISORDER
  2. VALPROATE SODIUM [Interacting]
     Indication: SUICIDE ATTEMPT
     Dates: start: 20100827, end: 20100827
  3. ALCOHOL [Interacting]
     Indication: PRODUCT USED FOR UNKNOWN INDICATION
     Dates: start: 20100827, end: 20100827

REACTIONS (2)
  - ALCOHOL INTERACTION [None]
  - SUICIDE ATTEMPT [None]
